FAERS Safety Report 5481847-X (Version None)
Quarter: 2007Q4

REPORT INFORMATION
  Report Type: 
  Country: None (occurrence: None)
  Receive Date: 20071010
  Receipt Date: 20070925
  Transmission Date: 20080405
  Serious: No
  Sender: FDA-Public Use
  Company Number: US-BOEHRINGER INGELHEIM PHARMACEUTICALS, INC.-2007-BP-20523BP

PATIENT
  Sex: Male

DRUGS (4)
  1. FLOMAX [Suspect]
     Indication: BENIGN PROSTATIC HYPERPLASIA
     Route: 048
     Dates: start: 20070601
  2. FLOMAX [Suspect]
     Indication: PROSTATE EXAMINATION ABNORMAL
  3. FLOMAX [Suspect]
     Indication: NOCTURIA
  4. LIPITOR [Concomitant]

REACTIONS (1)
  - NOCTURIA [None]
